FAERS Safety Report 23904324 (Version 2)
Quarter: 2024Q4

REPORT INFORMATION
  Report Type: Spontaneous
  Country: KR (occurrence: KR)
  Receive Date: 20240527
  Receipt Date: 20241017
  Transmission Date: 20250115
  Serious: Yes (Other)
  Sender: TAKEDA
  Company Number: KR-TAKEDA-2024TUS049622

PATIENT
  Age: 44 Year
  Sex: Female

DRUGS (3)
  1. ALUNBRIG [Suspect]
     Active Substance: BRIGATINIB
     Indication: Non-small cell lung cancer stage IV
     Dosage: 90 MILLIGRAM, QD
     Route: 065
     Dates: start: 20161013
  2. ALUNBRIG [Suspect]
     Active Substance: BRIGATINIB
     Dosage: 180 MILLIGRAM, QD
     Route: 065
     Dates: start: 20161020
  3. ALUNBRIG [Suspect]
     Active Substance: BRIGATINIB
     Dosage: 120 MILLIGRAM, QD
     Route: 065
     Dates: end: 20210715

REACTIONS (7)
  - Metastases to central nervous system [Unknown]
  - Therapy partial responder [Unknown]
  - Rash [Unknown]
  - Pruritus [Unknown]
  - Blood creatine phosphokinase increased [Unknown]
  - Amylase increased [Unknown]
  - Lipase increased [Unknown]

NARRATIVE: CASE EVENT DATE: 20161201
